FAERS Safety Report 8000218-5 (Version None)
Quarter: 2011Q4

REPORT INFORMATION
  Report Type: 
  Country: None (occurrence: None)
  Receive Date: 20111123
  Receipt Date: 20110928
  Transmission Date: 20120403
  Serious: Yes (Other)
  Sender: FDA-Public Use
  Company Number: 336136

PATIENT
  Age: 68 Year
  Sex: Female

DRUGS (2)
  1. VICTOZA [Suspect]
     Indication: PRODUCT USED FOR UNKNOWN INDICATION
     Dosage: 1.8 MG, QD, SUBCUTANEOUS
     Route: 058
     Dates: start: 20110301, end: 20110901
  2. VICTOZA [Suspect]
     Dosage: 1.2 MG, QD, SUBCUTANEOUS
     Dates: start: 20110901, end: 20110930

REACTIONS (1)
  - PANCREATITIS [None]
